FAERS Safety Report 10562506 (Version 2)
Quarter: 2015Q2

REPORT INFORMATION
  Report Type: Report from Study
  Country: TR (occurrence: TR)
  Receive Date: 20141104
  Receipt Date: 20150428
  Transmission Date: 20150821
  Serious: Yes (Other)
  Sender: FDA-Public Use
  Company Number: TR-NOVOPROD-427425

PATIENT
  Sex: Male
  Weight: 3.04 kg

DRUGS (4)
  1. DECAVIT                            /07504101/ [Concomitant]
     Indication: VITAMIN SUPPLEMENTATION
     Dosage: 1X1
     Route: 064
     Dates: start: 201402, end: 20140811
  2. NOVORAPID [Suspect]
     Active Substance: INSULIN ASPART
     Indication: GESTATIONAL DIABETES
     Dosage: 18 U, QD
     Route: 064
     Dates: start: 20140711, end: 20140811
  3. PROGESTAN [Concomitant]
     Active Substance: PROGESTERONE
     Indication: HORMONE THERAPY
     Dosage: 1X1
     Route: 064
     Dates: start: 201402, end: 20140811
  4. FERAMAT [Concomitant]
     Indication: MINERAL SUPPLEMENTATION
     Dosage: 1X1
     Route: 064
     Dates: start: 201402, end: 20140811

REACTIONS (2)
  - Foetal exposure during pregnancy [Recovered/Resolved]
  - Cartilage development disorder [Not Recovered/Not Resolved]

NARRATIVE: CASE EVENT DATE: 20140711
